FAERS Safety Report 4742873-9 (Version None)
Quarter: 2005Q3

REPORT INFORMATION
  Report Type: 
  Country: None (occurrence: None)
  Receive Date: 20050810
  Receipt Date: 20050810
  Transmission Date: 20060218
  Serious: Yes (Death)
  Sender: FDA-Public Use
  Company Number: None

PATIENT
  Age: 70 Year
  Sex: Female
  Weight: 108.8633 kg

DRUGS (2)
  1. FENTANYL [Suspect]
     Indication: PAIN
     Dosage: EVERY 72HR  PATCH   TRANSDERMA
     Route: 062
     Dates: start: 20041113, end: 20041114
  2. DILAUDID [Suspect]
     Indication: SPINAL COMPRESSION FRACTURE
     Dosage: 2MG    EVERY 4HR   ORAL
     Route: 048
     Dates: start: 20041112, end: 20041114

REACTIONS (1)
  - DEATH [None]
